FAERS Safety Report 10767577 (Version 4)
Quarter: 2015Q1

REPORT INFORMATION
  Report Type: Spontaneous
  Country: US (occurrence: US)
  Receive Date: 20150205
  Receipt Date: 20150323
  Transmission Date: 20150721
  Serious: Yes (Other)
  Sender: FDA-Public Use
  Company Number: US-PFIZER INC-2015045006

PATIENT
  Age: 90 Year
  Sex: Male
  Weight: 91 kg

DRUGS (2)
  1. ADVIL PM [Suspect]
     Active Substance: DIPHENHYDRAMINE CITRATE\IBUPROFEN
     Indication: SLEEP DISORDER
     Dosage: 400 MG, UNK (2-200 MG EVERY SO OFTEN)
     Route: 048
     Dates: start: 201312, end: 20150125
  2. ADVIL PM [Suspect]
     Active Substance: DIPHENHYDRAMINE CITRATE\IBUPROFEN
     Indication: PAIN
     Dosage: 400 MG, 1X/DAY (200MG ONCE A DAY 2 CAPLETS)
     Dates: start: 201404, end: 20150129

REACTIONS (2)
  - Blindness transient [Not Recovered/Not Resolved]
  - Visual impairment [Not Recovered/Not Resolved]

NARRATIVE: CASE EVENT DATE: 20150125
